FAERS Safety Report 5698216-X (Version None)
Quarter: 2008Q2

REPORT INFORMATION
  Report Type: 
  Country: None (occurrence: None)
  Receive Date: 20080408
  Receipt Date: 20080326
  Transmission Date: 20081010
  Serious: Yes (Hospitalization)
  Sender: FDA-Public Use
  Company Number: FR-ELI_LILLY_AND_COMPANY-FR200803005830

PATIENT
  Sex: Female

DRUGS (17)
  1. EVISTA [Suspect]
     Dosage: 60 MG, DAILY (1/D)
     Route: 048
     Dates: end: 20080208
  2. FUROSEMIDE [Concomitant]
     Dosage: 40 MG, DAILY (1/D)
     Route: 048
     Dates: end: 20080208
  3. OMEPRAZOLE [Concomitant]
     Dosage: 20 MG, DAILY (1/D)
     Route: 048
     Dates: end: 20080208
  4. MIFLASONE /FRA/ [Concomitant]
     Dosage: 400 UG, 2/D
     Route: 055
     Dates: end: 20080208
  5. VASTAREL [Concomitant]
     Dosage: 35 MG, 2/D
     Route: 048
     Dates: end: 20080208
  6. KESTIN [Concomitant]
     Dosage: 10 MG, DAILY (1/D)
     Route: 048
     Dates: end: 20080208
  7. TOPALGIC [Concomitant]
     Dosage: 50 MG, 2/D
     Route: 048
     Dates: end: 20080208
  8. DOLIPRANE [Concomitant]
     Dosage: 3000 MG, DAILY (1/D)
     Route: 048
     Dates: end: 20080208
  9. TEMESTA [Concomitant]
  10. FORADIL [Concomitant]
  11. OXEOL [Concomitant]
  12. SINGULAIR [Concomitant]
  13. TRIATEC [Concomitant]
     Dosage: UNK, UNK
     Dates: end: 20080201
  14. HEXAQUINE [Concomitant]
  15. DUPHALAC [Concomitant]
  16. DEBRIDAT [Concomitant]
  17. FLUTICASONE PROPIONATE [Concomitant]
     Indication: ASTHMA
     Dates: start: 20080201

REACTIONS (7)
  - CONFUSIONAL STATE [None]
  - CONSTIPATION [None]
  - DIZZINESS [None]
  - FALL [None]
  - FLATULENCE [None]
  - HYPONATRAEMIA [None]
  - VOMITING [None]
